FAERS Safety Report 12921326 (Version 1)
Quarter: 2016Q4

REPORT INFORMATION
  Report Type: Spontaneous
  Country: US (occurrence: US)
  Receive Date: 20161107
  Receipt Date: 20161107
  Transmission Date: 20170207
  Serious: Yes (Hospitalization, Other)
  Sender: FDA-Public Use
  Company Number: US-BRISTOL-MYERS SQUIBB COMPANY-BMS-2016-092734

PATIENT
  Sex: Female

DRUGS (1)
  1. ENTECAVIR. [Suspect]
     Active Substance: ENTECAVIR
     Indication: HEPATITIS B
     Route: 065

REACTIONS (9)
  - Dizziness [Unknown]
  - Respiratory failure [Unknown]
  - Liver function test abnormal [Unknown]
  - Fall [Unknown]
  - Renal failure [Unknown]
  - Lactic acidosis [Unknown]
  - Hepatorenal syndrome [Unknown]
  - Encephalopathy [Unknown]
  - Oedema peripheral [Unknown]
